FAERS Safety Report 8153700-4 (Version None)
Quarter: 2012Q1

REPORT INFORMATION
  Report Type: 
  Country: None (occurrence: None)
  Receive Date: 20120221
  Receipt Date: 20120214
  Transmission Date: 20120608
  Serious: Yes (Death)
  Sender: FDA-Public Use
  Company Number: JP-SANOFI-AVENTIS-2011SA084912

PATIENT
  Age: 79 Year
  Sex: Male

DRUGS (25)
  1. LASIX [Concomitant]
     Route: 048
     Dates: start: 20091026, end: 20110526
  2. ACARDI [Concomitant]
     Dosage: AFTER 24-JUN-2010
     Route: 048
  3. ASPIRIN [Concomitant]
     Route: 048
     Dates: start: 20091020, end: 20110526
  4. ISOSORBIDE DINITRATE [Concomitant]
     Dosage: DOSE: 4 ML/H CONTINUOUS INFUSION
     Dates: start: 20091019, end: 20091020
  5. FIRSTCIN [Concomitant]
     Indication: INFECTION PROPHYLAXIS
     Dosage: INJECTION
     Dates: start: 20091021, end: 20091023
  6. HEPARIN [Concomitant]
     Dosage: 12000 E
     Route: 042
     Dates: start: 20091020, end: 20091021
  7. DOPAMINE HCL [Concomitant]
     Dosage: CONTINUOUS INFUSION
     Dates: start: 20091026, end: 20091102
  8. HEPARIN [Concomitant]
     Dosage: DOSE:14000 UNIT(S)
     Route: 042
     Dates: start: 20091019, end: 20091020
  9. MARZULENE [Concomitant]
     Route: 048
     Dates: end: 20110526
  10. BISOLVON [Concomitant]
     Route: 048
     Dates: end: 20110526
  11. MAGNESIUM OXIDE [Concomitant]
     Route: 048
     Dates: end: 20110526
  12. TANADOPA [Concomitant]
     Route: 048
     Dates: start: 20091112, end: 20091118
  13. WARFARIN [Concomitant]
     Route: 048
     Dates: start: 20091107, end: 20110422
  14. MUCODYNE [Concomitant]
     Route: 048
  15. PLAVIX [Suspect]
     Dosage: LOADING TREATMENT
     Route: 065
     Dates: start: 20091019, end: 20091019
  16. PLAVIX [Suspect]
     Dosage: MAINTAINANCE  TREATMENT
     Route: 065
     Dates: start: 20091020, end: 20110526
  17. TANADOPA [Concomitant]
     Route: 048
     Dates: start: 20091024, end: 20091112
  18. SIGMART [Concomitant]
     Dosage: INJECTION
     Route: 048
     Dates: start: 20091020, end: 20110526
  19. ALL OTHER THERAPEUTIC PRODUCTS [Concomitant]
     Dates: start: 20091020, end: 20110526
  20. LASIX [Concomitant]
     Route: 048
     Dates: start: 20091023, end: 20091025
  21. ACARDI [Concomitant]
     Route: 048
     Dates: start: 20091029, end: 20100624
  22. HEPARIN [Concomitant]
     Dosage: DOSE:10000 UNIT(S)
     Route: 042
     Dates: start: 20091019, end: 20091019
  23. OMEPRAZOLE [Concomitant]
     Route: 048
     Dates: start: 20091020, end: 20110526
  24. SIGMART [Concomitant]
     Dosage: INJECTION
     Dates: start: 20091019, end: 20091020
  25. CARVEDILOL [Concomitant]
     Route: 048
     Dates: start: 20091107, end: 20110526

REACTIONS (1)
  - CEREBRAL HAEMORRHAGE [None]
